FAERS Safety Report 10501203 (Version 1)
Quarter: 2014Q4

REPORT INFORMATION
  Report Type: Spontaneous
  Country: US (occurrence: None)
  Receive Date: 20141006
  Receipt Date: 20141006
  Transmission Date: 20150528
  Serious: Yes (Hospitalization, Other)
  Sender: FDA-Public Use
  Company Number: None

PATIENT
  Age: 38 Year
  Sex: Female
  Weight: 102.06 kg

DRUGS (2)
  1. BUPROPION SR [Suspect]
     Active Substance: BUPROPION
     Indication: DEPRESSION
     Dosage: 1 PILL  TWICE DAILY  TAKEN BY MOUTH
     Route: 048
     Dates: start: 20140828, end: 20141002
  2. BUPROPION SR [Suspect]
     Active Substance: BUPROPION
     Dosage: 1 PILL  TWICE DAILY  TAKEN BY MOUTH
     Route: 048
     Dates: start: 20140828, end: 20141002

REACTIONS (9)
  - Panic attack [None]
  - Chest discomfort [None]
  - Anxiety [None]
  - Product quality issue [None]
  - Conversion disorder [None]
  - Choking [None]
  - Depression [None]
  - Product substitution issue [None]
  - Crying [None]

NARRATIVE: CASE EVENT DATE: 20140829
